FAERS Safety Report 6216777-9 (Version None)
Quarter: 2009Q2

REPORT INFORMATION
  Report Type: 
  Country: None (occurrence: None)
  Receive Date: 20090605
  Receipt Date: 20090525
  Transmission Date: 20091009
  Serious: Yes (Other)
  Sender: FDA-Public Use
  Company Number: SE-ELI_LILLY_AND_COMPANY-SE200906000929

PATIENT
  Age: 63 Year
  Sex: Male

DRUGS (3)
  1. HUMALOG [Suspect]
     Indication: TYPE 1 DIABETES MELLITUS
     Dosage: 4-6 E, DURING A MEAL
     Route: 065
  2. HUMALOG [Suspect]
     Dosage: 42 E, ONCE
     Route: 065
     Dates: start: 20070410, end: 20070410
  3. LANTUS [Concomitant]
     Indication: TYPE 1 DIABETES MELLITUS
     Dosage: 42 E, DAILY (1/D)
     Route: 065

REACTIONS (3)
  - DRUG PRESCRIBING ERROR [None]
  - HYPOGLYCAEMIA [None]
  - ROAD TRAFFIC ACCIDENT [None]
